FAERS Safety Report 10138635 (Version 1)
Quarter: 2014Q2

REPORT INFORMATION
  Report Type: Spontaneous
  Country: US (occurrence: US)
  Receive Date: 20140429
  Receipt Date: 20140429
  Transmission Date: 20141212
  Serious: Yes (Hospitalization)
  Sender: FDA-Public Use
  Company Number: US-JNJFOC-20140413814

PATIENT
  Age: 69 Year
  Sex: Male

DRUGS (11)
  1. ZYTIGA [Suspect]
     Indication: PROSTATE CANCER
     Dosage: 250 MG
     Route: 048
  2. ASPIRIN [Concomitant]
     Route: 065
  3. INSULIN [Concomitant]
     Route: 065
  4. METFORMIN [Concomitant]
     Route: 065
  5. LUPRON [Concomitant]
     Route: 065
  6. METOPROLOL [Concomitant]
     Route: 065
  7. MULTIVITAMINS [Concomitant]
     Route: 065
  8. PREDNISONE [Concomitant]
     Route: 065
  9. PRILOSEC [Concomitant]
     Route: 065
  10. SIMVASTATIN [Concomitant]
     Route: 065
  11. RAPAFLO [Concomitant]
     Route: 065

REACTIONS (2)
  - Sepsis [Unknown]
  - Hypomagnesaemia [Unknown]
